FAERS Safety Report 13817398 (Version 1)
Quarter: 2017Q3

REPORT INFORMATION
  Report Type: Spontaneous
  Country: ES (occurrence: ES)
  Receive Date: 20170731
  Receipt Date: 20170731
  Transmission Date: 20171127
  Serious: Yes (Life-Threatening, Hospitalization, Other)
  Sender: FDA-Public Use
  Company Number: PHHY2017ES111077

PATIENT
  Age: 62 Year
  Sex: Female

DRUGS (2)
  1. PARACETAMOL [Suspect]
     Active Substance: ACETAMINOPHEN
     Indication: PRODUCT USED FOR UNKNOWN INDICATION
     Route: 048
  2. RIMSTAR [Suspect]
     Active Substance: ETHAMBUTOL\ISONIAZID\PYRAZINAMIDE\RIFAMYCIN
     Indication: LYMPH NODE TUBERCULOSIS
     Route: 048
     Dates: start: 20170624, end: 20170710

REACTIONS (4)
  - Headache [Recovering/Resolving]
  - Thrombocytopenia [Recovering/Resolving]
  - Nausea [Recovering/Resolving]
  - Hepatitis [Recovering/Resolving]

NARRATIVE: CASE EVENT DATE: 201706
